FAERS Safety Report 12861935 (Version 2)
Quarter: 2018Q4

REPORT INFORMATION
  Report Type: Spontaneous
  Country: DK (occurrence: DK)
  Receive Date: 20161019
  Receipt Date: 20181130
  Transmission Date: 20190204
  Serious: Yes (Other)
  Sender: FDA-Public Use
  Company Number: DK-AMGEN-DNKSP2016141509

PATIENT
  Age: 48 Year
  Sex: Female

DRUGS (2)
  1. PROLIA [Suspect]
     Active Substance: DENOSUMAB
     Indication: OSTEOPOROSIS
     Dosage: 60 MG, Q6MO
     Route: 042
     Dates: start: 2012
  2. ACLASTA [Suspect]
     Active Substance: ZOLEDRONIC ACID
     Indication: OSTEOPOROSIS
     Dosage: 5 MG, Q12MO
     Route: 065
     Dates: start: 2006

REACTIONS (4)
  - Osteonecrosis of jaw [Recovered/Resolved]
  - Pain in jaw [Unknown]
  - Sequestrectomy [Recovered/Resolved]
  - Exposed bone in jaw [Unknown]

NARRATIVE: CASE EVENT DATE: 20160613
